FAERS Safety Report 6908153-8 (Version None)
Quarter: 2010Q3

REPORT INFORMATION
  Report Type: 
  Country: None (occurrence: None)
  Receive Date: 20100708
  Receipt Date: 20090227
  Transmission Date: 20110219
  Serious: Yes (Other)
  Sender: FDA-Public Use
  Company Number: 2009178692

PATIENT
  Sex: Male

DRUGS (3)
  1. CHANTIX [Suspect]
  2. LOVENOX [Suspect]
  3. ACETAMINOPHEN AND OXYCODONE HCL [Suspect]

REACTIONS (3)
  - FEELING DRUNK [None]
  - SOMNOLENCE [None]
  - THROMBOSIS [None]
